FAERS Safety Report 6385006-8 (Version None)
Quarter: 2009Q4

REPORT INFORMATION
  Report Type: 
  Country: None (occurrence: None)
  Receive Date: 20091002
  Receipt Date: 20090921
  Transmission Date: 20100525
  Serious: Yes (Other)
  Sender: FDA-Public Use
  Company Number: PHHY2009NO37283

PATIENT
  Sex: Female

DRUGS (3)
  1. LESCOL [Suspect]
     Indication: TRANSIENT ISCHAEMIC ATTACK
     Dosage: 20 MG, UNK
  2. EZETROL [Suspect]
     Dosage: 10 MG, UNK
  3. SIMVASTATIN [Suspect]
     Indication: HYPERCHOLESTEROLAEMIA
     Dosage: 20 MG, UNK

REACTIONS (2)
  - MOTOR DYSFUNCTION [None]
  - PARAESTHESIA [None]
